FAERS Safety Report 25625072 (Version 1)
Quarter: 2025Q3

REPORT INFORMATION
  Report Type: Spontaneous
  Country: US (occurrence: US)
  Receive Date: 20250731
  Receipt Date: 20250731
  Transmission Date: 20251021
  Serious: No
  Sender: ABBVIE
  Company Number: US-ABBVIE-6388428

PATIENT
  Age: 32 Year
  Sex: Female
  Weight: 101 kg

DRUGS (2)
  1. VRAYLAR [Suspect]
     Active Substance: CARIPRAZINE
     Indication: Bipolar disorder
     Dosage: FORM STRENGTH: 1.5 MILLIGRAM
     Route: 048
     Dates: start: 202407
  2. VRAYLAR [Suspect]
     Active Substance: CARIPRAZINE
     Indication: Bipolar disorder
     Dosage: FORM STRENGTH: 3 MILLIGRAM
     Route: 048
     Dates: start: 202209, end: 202407

REACTIONS (7)
  - Obesity [Not Recovered/Not Resolved]
  - Hyperphagia [Not Recovered/Not Resolved]
  - Weight increased [Not Recovered/Not Resolved]
  - Body mass index increased [Not Recovered/Not Resolved]
  - Glucose tolerance impaired [Not Recovered/Not Resolved]
  - Insulin resistance [Not Recovered/Not Resolved]
  - Hunger [Unknown]

NARRATIVE: CASE EVENT DATE: 20220101
